FAERS Safety Report 5044072-2 (Version None)
Quarter: 2006Q3

REPORT INFORMATION
  Report Type: 
  Country: None (occurrence: None)
  Receive Date: 20060706
  Receipt Date: 20060518
  Transmission Date: 20061208
  Serious: Yes (Hospitalization)
  Sender: FDA-Public Use
  Company Number: JP-AVENTIS-200611569JP

PATIENT
  Age: 73 Year
  Sex: Male
  Weight: 65 kg

DRUGS (4)
  1. RILUTEK [Suspect]
     Indication: AMYOTROPHIC LATERAL SCLEROSIS
     Route: 048
     Dates: start: 20030325, end: 20050201
  2. RILUTEK [Suspect]
     Dosage: ROUTE: GASTROSTOMY TUBE
     Route: 050
     Dates: start: 20050201, end: 20050718
  3. MYONAL [Concomitant]
     Indication: MUSCLE SPASTICITY
     Route: 048
     Dates: start: 20030301, end: 20050201
  4. MYONAL [Concomitant]
     Dosage: ROUTE: GASTROSTOMY TUBE
     Route: 050
     Dates: start: 20050201, end: 20050716

REACTIONS (4)
  - DISEASE PROGRESSION [None]
  - GASTRIC ULCER HAEMORRHAGE [None]
  - SHOCK HAEMORRHAGIC [None]
  - SYNCOPE [None]
